FAERS Safety Report 23592518 (Version 1)
Quarter: 2024Q1

REPORT INFORMATION
  Report Type: Report from Study
  Country: MX (occurrence: MX)
  Receive Date: 20240304
  Receipt Date: 20240304
  Transmission Date: 20240410
  Serious: Yes (Hospitalization, Other)
  Sender: FDA-Public Use
  Company Number: MX-AstraZeneca-2023A248230

PATIENT
  Age: 122 Day
  Sex: Male
  Weight: 6.2 kg

DRUGS (3)
  1. SYNAGIS [Suspect]
     Active Substance: PALIVIZUMAB
     Indication: Prophylaxis
     Dosage: 0.68 ML, MONTHLY
     Route: 030
     Dates: end: 20230927
  2. SYNAGIS [Suspect]
     Active Substance: PALIVIZUMAB
     Dosage: 0.78 ML, MONTHLY
     Route: 030
     Dates: end: 20231025
  3. SYNAGIS [Suspect]
     Active Substance: PALIVIZUMAB
     Dosage: 0.94 ML, MONTHLY
     Route: 030
     Dates: end: 20231129

REACTIONS (5)
  - Dyspnoea [Recovered/Resolved]
  - Respiration abnormal [Not Recovered/Not Resolved]
  - Influenza [Recovered/Resolved]
  - Pulmonary congestion [Recovering/Resolving]
  - Seizure [Not Recovered/Not Resolved]

NARRATIVE: CASE EVENT DATE: 20230901
